FAERS Safety Report 12907733 (Version 2)
Quarter: 2017Q1

REPORT INFORMATION
  Report Type: Spontaneous
  Country: US (occurrence: US)
  Receive Date: 20161103
  Receipt Date: 20170109
  Transmission Date: 20170428
  Serious: No
  Sender: FDA-Public Use
  Company Number: PHEH2016US028501

PATIENT
  Age: 3 Year
  Sex: Male

DRUGS (2)
  1. MEKINIST [Suspect]
     Active Substance: TRAMETINIB DIMETHYL SULFOXIDE
     Indication: NEUROFIBROMATOSIS
     Dosage: 1 DF (DISSOLVE ONE TABLET IN 10 ML), QD
     Route: 048
     Dates: start: 20150209
  2. MEKINIST [Suspect]
     Active Substance: TRAMETINIB DIMETHYL SULFOXIDE
     Indication: NEOPLASM
     Dosage: 0.07 MG, QD
     Route: 048
     Dates: start: 20160104

REACTIONS (5)
  - Gastrointestinal disorder [Recovering/Resolving]
  - Wrong technique in product usage process [Unknown]
  - Diarrhoea [Unknown]
  - Abdominal pain [Unknown]
  - Abdominal discomfort [Unknown]

NARRATIVE: CASE EVENT DATE: 20161001
